FAERS Safety Report 8125069-2 (Version None)
Quarter: 2012Q1

REPORT INFORMATION
  Report Type: 
  Country: None (occurrence: None)
  Receive Date: 20120209
  Receipt Date: 20120130
  Transmission Date: 20120608
  Serious: Yes (Other)
  Sender: FDA-Public Use
  Company Number: AU-ROCHE-1035870

PATIENT
  Sex: Female

DRUGS (4)
  1. METHOTREXATE [Suspect]
     Indication: BREAST CANCER
  2. XELODA [Suspect]
     Indication: BREAST CANCER
  3. FLUOROURACIL [Suspect]
     Indication: BREAST CANCER
  4. CYCLOPHOSPHAMIDE [Suspect]
     Indication: BREAST CANCER
     Route: 048

REACTIONS (17)
  - ALOPECIA [None]
  - LEUKOPENIA [None]
  - MUCOSAL INFLAMMATION [None]
  - DYSPNOEA [None]
  - FEBRILE NEUTROPENIA [None]
  - THROMBOCYTOPENIA [None]
  - VOMITING [None]
  - PALMAR-PLANTAR ERYTHRODYSAESTHESIA SYNDROME [None]
  - DIARRHOEA [None]
  - FATIGUE [None]
  - NAUSEA [None]
  - CONJUNCTIVITIS [None]
  - NEUTROPENIA [None]
  - ANAEMIA [None]
  - INFECTION [None]
  - STOMATITIS [None]
  - GASTROINTESTINAL HAEMORRHAGE [None]
